FAERS Safety Report 8320353-1 (Version None)
Quarter: 2012Q2

REPORT INFORMATION
  Report Type: 
  Country: None (occurrence: None)
  Receive Date: 20120426
  Receipt Date: 20120426
  Transmission Date: 20120825
  Serious: Yes (Congenital Anomaly)
  Sender: FDA-Public Use
  Company Number: None

PATIENT
  Sex: Male
  Weight: 96.1626 kg

DRUGS (2)
  1. NIFEDIPINE [Suspect]
     Indication: HYPERTENSION
     Dosage: 50 MG QD PO
     Route: 048
     Dates: start: 20110503
  2. NIFEDIPINE [Suspect]
     Indication: HYPERTENSION
     Dosage: 50 MG QD PO
     Route: 048
     Dates: start: 20111104

REACTIONS (3)
  - PRODUCT SUBSTITUTION ISSUE [None]
  - BLOOD PRESSURE INCREASED [None]
  - DRUG EFFECT DECREASED [None]
